FAERS Safety Report 5874053-8 (Version None)
Quarter: 2008Q3

REPORT INFORMATION
  Report Type: 
  Country: None (occurrence: None)
  Receive Date: 20080908
  Receipt Date: 20080829
  Transmission Date: 20090109
  Serious: Yes (Hospitalization)
  Sender: FDA-Public Use
  Company Number: DE-AVENTIS-200812325DE

PATIENT
  Age: 55 Year
  Sex: Female
  Weight: 58 kg

DRUGS (7)
  1. LEFLUNOMIDE [Suspect]
     Indication: RHEUMATOID ARTHRITIS
     Dosage: DOSE: NOT REPORTED
     Route: 048
  2. RAMIPRIL [Concomitant]
     Indication: HYPERTENSION
     Dosage: DOSE: NOT REPORTED
  3. NEBIVOLOL HCL [Concomitant]
     Indication: HYPERTENSION
     Dosage: DOSE: NOT REPORTED
  4. XIPAMID [Concomitant]
     Indication: HYPERTENSION
     Dosage: DOSE: NOT REPORTED
  5. LEVOTHYROXINE SODIUM [Concomitant]
     Dosage: DOSE: NOT REPORTED
  6. METHYLPREDNISOLONE [Concomitant]
     Indication: RHEUMATOID ARTHRITIS
     Dosage: DOSE: NOT REPORTED
  7. INSULIN [Concomitant]
     Dosage: DOSE: NOT REPORTED

REACTIONS (1)
  - COLITIS [None]
